FAERS Safety Report 23060565 (Version 4)
Quarter: 2024Q4

REPORT INFORMATION
  Report Type: Spontaneous
  Country: CA (occurrence: CA)
  Receive Date: 20231012
  Receipt Date: 20241211
  Transmission Date: 20250114
  Serious: Yes (Other)
  Sender: PFIZER
  Company Number: CA-PFIZER INC-202300316047

PATIENT
  Age: 29 Year
  Sex: Male

DRUGS (5)
  1. CIBINQO [Suspect]
     Active Substance: ABROCITINIB
     Indication: Dermatitis atopic
     Dosage: 100 MG, 1X/DAY
     Route: 048
     Dates: start: 20230825, end: 2023
  2. CIBINQO [Suspect]
     Active Substance: ABROCITINIB
     Dosage: 200 MG, 1X/DAY(DISCONTINUED   )
     Route: 048
     Dates: start: 2023, end: 2024
  3. CLOBETASOL [Concomitant]
     Active Substance: CLOBETASOL
     Dosage: 1 DF
  4. RUPATADINE FUMARATE [Concomitant]
     Active Substance: RUPATADINE FUMARATE
     Dosage: 1 DF
  5. TOPICORT [Concomitant]
     Active Substance: DESOXIMETASONE
     Dosage: 1 DF

REACTIONS (3)
  - Craniofacial fracture [Not Recovered/Not Resolved]
  - Drug ineffective [Unknown]
  - Condition aggravated [Not Recovered/Not Resolved]

NARRATIVE: CASE EVENT DATE: 20230101
